FAERS Safety Report 17149869 (Version 1)
Quarter: 2019Q4

REPORT INFORMATION
  Report Type: Report from Study
  Country: BR (occurrence: BR)
  Receive Date: 20191213
  Receipt Date: 20191213
  Transmission Date: 20200122
  Serious: Yes (Disabling, Other)
  Sender: FDA-Public Use
  Company Number: PHHY2019BR134139

PATIENT
  Age: 51 Year
  Sex: Female

DRUGS (6)
  1. SIMVASTATIN. [Suspect]
     Active Substance: SIMVASTATIN
     Indication: PRODUCT USED FOR UNKNOWN INDICATION
     Dosage: UNK
     Route: 065
  2. CALCIUM [Concomitant]
     Active Substance: CALCIUM
     Indication: PRODUCT USED FOR UNKNOWN INDICATION
     Dosage: UNK
     Route: 065
  3. AAS [Concomitant]
     Active Substance: ASPIRIN
     Indication: PRODUCT USED FOR UNKNOWN INDICATION
     Dosage: UNK
     Route: 065
  4. VALSARTAN. [Suspect]
     Active Substance: VALSARTAN
     Indication: PRODUCT USED FOR UNKNOWN INDICATION
     Dosage: 320 MG
     Route: 065
  5. DIOVAN [Suspect]
     Active Substance: VALSARTAN
     Indication: HYPERTENSION
     Dosage: 320 MG, UNK (ABOUT 6 YEARS AGO)
     Route: 065
     Dates: start: 2013
  6. LOSARTAN. [Suspect]
     Active Substance: LOSARTAN
     Indication: PRODUCT USED FOR UNKNOWN INDICATION
     Route: 065

REACTIONS (21)
  - Movement disorder [Not Recovered/Not Resolved]
  - Blood pressure increased [Unknown]
  - Cataract [Unknown]
  - Headache [Unknown]
  - Limb discomfort [Unknown]
  - Crying [Unknown]
  - Fall [Recovered/Resolved with Sequelae]
  - Wrist fracture [Recovered/Resolved with Sequelae]
  - Visual impairment [Not Recovered/Not Resolved]
  - Fear [Unknown]
  - Hand fracture [Recovered/Resolved with Sequelae]
  - Irritability [Not Recovered/Not Resolved]
  - Blood pressure decreased [Unknown]
  - Feeling abnormal [Not Recovered/Not Resolved]
  - Radius fracture [Unknown]
  - Nervousness [Not Recovered/Not Resolved]
  - Eye injury [Recovered/Resolved with Sequelae]
  - Blindness [Not Recovered/Not Resolved]
  - Ischaemic stroke [Unknown]
  - Fall [Recovered/Resolved with Sequelae]
  - Osteoporosis [Recovered/Resolved with Sequelae]

NARRATIVE: CASE EVENT DATE: 201308
